FAERS Safety Report 15651508 (Version 2)
Quarter: 2018Q4

REPORT INFORMATION
  Report Type: Spontaneous
  Country: US (occurrence: US)
  Receive Date: 20181123
  Receipt Date: 20181228
  Transmission Date: 20190205
  Serious: No
  Sender: FDA-Public Use
  Company Number: US-SA-2018SA321812

PATIENT
  Age: 70 Year
  Sex: Female

DRUGS (1)
  1. LANTUS [Suspect]
     Active Substance: INSULIN GLARGINE
     Dosage: 10 IU, QD
     Dates: start: 20181102

REACTIONS (2)
  - Blood glucose increased [Unknown]
  - Product use issue [Unknown]
